FAERS Safety Report 18688797 (Version 6)
Quarter: 2022Q4

REPORT INFORMATION
  Report Type: Spontaneous
  Country: US (occurrence: US)
  Receive Date: 20201231
  Receipt Date: 20221229
  Transmission Date: 20230113
  Serious: Yes (Life-Threatening, Hospitalization, Other)
  Sender: FDA-Public Use
  Company Number: US-SA-2020SA375302

PATIENT
  Age: 71 Year
  Sex: Female

DRUGS (26)
  1. ZANTAC [Suspect]
     Active Substance: RANITIDINE HYDROCHLORIDE
     Dosage: UNK
     Dates: start: 199501, end: 202002
  2. GABAPENTIN [Concomitant]
     Active Substance: GABAPENTIN
     Dosage: 600 MG, Q3D
     Route: 048
  3. LORAZEPAM [Concomitant]
     Active Substance: LORAZEPAM
     Dosage: 2 MG, Q4D
     Route: 048
     Dates: end: 20200519
  4. SUVOREXANT [Concomitant]
     Active Substance: SUVOREXANT
     Dosage: 7.5 MG
     Route: 048
     Dates: end: 20191218
  5. BUPROPION [Concomitant]
     Active Substance: BUPROPION
     Dosage: 75 MG, BID
     Route: 048
  6. ERGOCALCIFEROL [Concomitant]
     Active Substance: ERGOCALCIFEROL
     Dosage: 50000 UNK, QW
     Dates: end: 20200730
  7. MIRTAZAPINE [Concomitant]
     Active Substance: MIRTAZAPINE
     Dosage: 30 MG
     Route: 048
  8. ROSUVASTATIN [Concomitant]
     Active Substance: ROSUVASTATIN
     Dosage: 10 MG, QD
     Route: 048
  9. PANTOPRAZOLE [Concomitant]
     Active Substance: PANTOPRAZOLE
     Dosage: 40 MG, QD
     Route: 048
     Dates: start: 20190131
  10. FERROUS SULFATE\FOLIC ACID [Concomitant]
     Active Substance: FERROUS SULFATE\FOLIC ACID
     Dosage: 325 MG, BID
     Dates: start: 20190131, end: 20190604
  11. FLUDEOXYGLUCOSE F-18 [Concomitant]
     Active Substance: FLUDEOXYGLUCOSE F-18
     Dosage: 13. MCI
     Route: 042
  12. CARBOPLATIN [Concomitant]
     Active Substance: CARBOPLATIN
     Dosage: 186 MG, 1X
     Route: 042
     Dates: start: 20190405, end: 20190405
  13. SODIUM CHLORIDE [Concomitant]
     Active Substance: SODIUM CHLORIDE
     Dosage: 10 ML
     Route: 042
  14. ONDANSETRON [Concomitant]
     Active Substance: ONDANSETRON
     Dosage: 8 MG, QD
     Route: 048
     Dates: start: 20190329, end: 20190405
  15. ONDANSETRON [Concomitant]
     Active Substance: ONDANSETRON
     Dosage: 8 MG
     Route: 048
     Dates: start: 20190405, end: 20190709
  16. FAMOTIDINE [Concomitant]
     Active Substance: FAMOTIDINE
     Dosage: 20 MG, 1X
     Route: 042
     Dates: start: 20190412
  17. DIPHENHYDRAMINE [Concomitant]
     Active Substance: DIPHENHYDRAMINE
     Dosage: 25 MG, 1X
     Route: 042
     Dates: start: 20190412, end: 20190412
  18. DEXAMETHASONE [Concomitant]
     Active Substance: DEXAMETHASONE
     Dosage: 20 MG, 1X
     Route: 042
     Dates: start: 20190412, end: 20190412
  19. PALONOSETRON [Concomitant]
     Active Substance: PALONOSETRON
     Dosage: 0.25 MG, 1X
     Dates: start: 20190412, end: 20190412
  20. PACLITAXEL [Concomitant]
     Active Substance: PACLITAXEL
     Dosage: 50 MG, 1X
     Dates: start: 20190412, end: 20190412
  21. BELSOMRA [Concomitant]
     Active Substance: SUVOREXANT
     Dosage: 15 MG
  22. FERROUS SULFATE [Concomitant]
     Active Substance: FERROUS SULFATE
     Dosage: 325 MG
     Route: 048
  23. FLUTICASONE PROPIONATE [Concomitant]
     Active Substance: FLUTICASONE PROPIONATE
     Dosage: 50 UG
  24. LIDOCAINE [Concomitant]
     Active Substance: LIDOCAINE
  25. OLANZAPINE [Concomitant]
     Active Substance: OLANZAPINE
     Dosage: 5 MG
     Route: 048
  26. OXYCODONE [Concomitant]
     Active Substance: OXYCODONE
     Indication: Pain
     Dosage: 6 HRS AS NEEDED
     Route: 048

REACTIONS (12)
  - Odynophagia [Unknown]
  - Oesophageal carcinoma [Unknown]
  - Nasopharyngeal cancer [Unknown]
  - Oesophageal carcinoma [Unknown]
  - Neoplasm malignant [Recovered/Resolved]
  - Anxiety [Unknown]
  - Barrett^s oesophagus [Unknown]
  - Road traffic accident [Unknown]
  - Gastritis [Unknown]
  - Hiatus hernia [Unknown]
  - Colonoscopy [Unknown]
  - Oesophagogastroduodenoscopy [Unknown]

NARRATIVE: CASE EVENT DATE: 20100601
